FAERS Safety Report 8470567-5 (Version None)
Quarter: 2012Q2

REPORT INFORMATION
  Report Type: 
  Country: None (occurrence: None)
  Receive Date: 20120627
  Receipt Date: 20120622
  Transmission Date: 20120825
  Serious: Yes (Other)
  Sender: FDA-Public Use
  Company Number: PHHY2012BR043337

PATIENT
  Sex: Female
  Weight: 62 kg

DRUGS (7)
  1. ASPIRIN [Concomitant]
     Indication: ANTICOAGULANT THERAPY
     Dosage: 1 TABLET DAILY
     Route: 048
  2. AMLODIPINE BESYLATE [Concomitant]
     Indication: HYPERTENSION
     Dosage: 1 TABLET A DAY
     Route: 048
  3. ATENOLOL [Concomitant]
     Indication: HYPERTENSION
     Dosage: 1 TABLET DAILY
     Route: 048
  4. INSULIN [Concomitant]
     Indication: DIABETES MELLITUS
     Dosage: 40 UNITS IN THE MORNING AND 10 UNITS AT NIGHT
     Route: 058
  5. DIOVAN HCT [Suspect]
     Indication: HYPERTENSION
     Dosage: 1 TABLET (160/12.5 MG) DAILY
     Route: 048
  6. OMEPRAZOLE [Concomitant]
     Indication: ABDOMINAL DISCOMFORT
     Dosage: 1 TABLET DAILY
     Route: 048
  7. ATORVASTATIN [Concomitant]
     Indication: BLOOD CHOLESTEROL INCREASED
     Dosage: 1 TABLET DAILY
     Route: 048

REACTIONS (1)
  - DIABETES MELLITUS INADEQUATE CONTROL [None]
